FAERS Safety Report 11277090 (Version 1)
Quarter: 2015Q3

REPORT INFORMATION
  Report Type: Spontaneous
  Country: BR (occurrence: BR)
  Receive Date: 20150716
  Receipt Date: 20150716
  Transmission Date: 20151125
  Serious: Yes (Death)
  Sender: FDA-Public Use
  Company Number: BR-PFIZER INC-2015235668

PATIENT
  Age: 55 Year
  Sex: Male

DRUGS (5)
  1. PREDNISONA [Concomitant]
     Active Substance: PREDNISONE
  2. SOMAVERT [Suspect]
     Active Substance: PEGVISOMANT
     Indication: ACROMEGALY
     Dosage: 10 MG, 1X/DAY
     Dates: start: 201210
  3. CALCIO /00183801/ [Concomitant]
  4. SINVASTATINA [Concomitant]
     Active Substance: SIMVASTATIN
  5. ALENDRONATO [Concomitant]

REACTIONS (2)
  - Constipation [Unknown]
  - Death [Fatal]

NARRATIVE: CASE EVENT DATE: 20150708
